FAERS Safety Report 21786021 (Version 1)
Quarter: 2022Q4

REPORT INFORMATION
  Report Type: Spontaneous
  Country: FR (occurrence: FR)
  Receive Date: 20221228
  Receipt Date: 20221228
  Transmission Date: 20230112
  Serious: Yes (Other)
  Sender: FDA-Public Use
  Company Number: FR-SUN PHARMACEUTICAL INDUSTRIES LTD-2022RR-370687

PATIENT
  Age: 71 Year
  Sex: Female
  Weight: 70 kg

DRUGS (4)
  1. CEFTRIAXONE [Suspect]
     Active Substance: CEFTRIAXONE
     Indication: Arthritis infective
     Dosage: 4 GRAM, DAILY
     Route: 058
     Dates: start: 20221115, end: 20221125
  2. PREGABALIN [Suspect]
     Active Substance: PREGABALIN
     Indication: Arthritis infective
     Dosage: 50 MILLIGRAM, DAILY, 25 MG 2 TIMES/DAY
     Route: 048
     Dates: start: 20221118, end: 20221125
  3. FLAGYL [Suspect]
     Active Substance: METRONIDAZOLE\METRONIDAZOLE HYDROCHLORIDE
     Indication: Arthritis infective
     Dosage: 1500 MILLIGRAM, DAILY, 500 MG 3 TIMES/DAY
     Route: 048
     Dates: start: 20221115, end: 20221125
  4. DALBAVANCIN HYDROCHLORIDE [Suspect]
     Active Substance: DALBAVANCIN HYDROCHLORIDE
     Indication: Arthritis infective
     Dosage: 1500 MILLIGRAM
     Route: 040
     Dates: start: 20221115, end: 20221123

REACTIONS (1)
  - Neutropenia [Not Recovered/Not Resolved]

NARRATIVE: CASE EVENT DATE: 20221121
